FAERS Safety Report 7535013-4 (Version None)
Quarter: 2011Q2

REPORT INFORMATION
  Report Type: 
  Country: None (occurrence: None)
  Receive Date: 20110609
  Receipt Date: 20110602
  Transmission Date: 20111010
  Serious: No
  Sender: FDA-Public Use
  Company Number: US-BIOGENIDEC-2011BI009931

PATIENT
  Age: 36 Year
  Sex: Female

DRUGS (2)
  1. CHANTIX [Concomitant]
  2. TYSABRI [Suspect]
     Indication: MULTIPLE SCLEROSIS
     Route: 042
     Dates: start: 20110224, end: 20110406

REACTIONS (15)
  - BRONCHITIS [None]
  - BLINDNESS UNILATERAL [None]
  - DYSPNOEA [None]
  - NAUSEA [None]
  - NEUTRALISING ANTIBODIES POSITIVE [None]
  - SINUSITIS [None]
  - EAR INFECTION [None]
  - VOMITING [None]
  - BLOOD PRESSURE INCREASED [None]
  - OPTIC NEURITIS [None]
  - GAIT DISTURBANCE [None]
  - MUSCULAR WEAKNESS [None]
  - ERYTHEMA [None]
  - HYPOAESTHESIA [None]
  - STRESS [None]
